FAERS Safety Report 5498037-7 (Version None)
Quarter: 2007Q4

REPORT INFORMATION
  Report Type: 
  Country: None (occurrence: None)
  Receive Date: 20071018
  Receipt Date: 20070507
  Transmission Date: 20080405
  Serious: Yes (Hospitalization, Other)
  Sender: FDA-Public Use
  Company Number: 2005132286

PATIENT
  Age: 31 Year
  Sex: Female

DRUGS (5)
  1. NEURONTIN [Suspect]
     Indication: NERVE INJURY
     Dosage: 2700 MG (900 MG, 3 IN 1 D)
     Dates: start: 20031101
  2. ZOLOFT [Concomitant]
  3. CLONOPIN [Concomitant]
  4. ESTRACE [Concomitant]
  5. BENTYL [Concomitant]

REACTIONS (8)
  - ANXIETY [None]
  - CONVULSION [None]
  - COORDINATION ABNORMAL [None]
  - DIZZINESS [None]
  - DRUG INEFFECTIVE [None]
  - EMOTIONAL DISORDER [None]
  - MAJOR DEPRESSION [None]
  - SUICIDAL BEHAVIOUR [None]
